FAERS Safety Report 9247702 (Version 2)
Quarter: 2014Q1

REPORT INFORMATION
  Report Type: Spontaneous
  Country: PH (occurrence: PH)
  Receive Date: 20130423
  Receipt Date: 20140107
  Transmission Date: 20141002
  Serious: No
  Sender: FDA-Public Use
  Company Number: PH-UCBSA-084026

PATIENT
  Sex: 0

DRUGS (1)
  1. DEPONIT [Suspect]
     Dosage: UNKNOWN DOSE
     Route: 061

REACTIONS (1)
  - Pain [Unknown]
